FAERS Safety Report 9735455 (Version 2)
Quarter: 2015Q3

REPORT INFORMATION
  Report Type: Spontaneous
  Country: US (occurrence: US)
  Receive Date: 20131206
  Receipt Date: 20150804
  Transmission Date: 20151125
  Serious: No
  Sender: FDA-Public Use
  Company Number: US-GILEAD-2009-0023215

PATIENT
  Age: 84 Year
  Sex: Female

DRUGS (19)
  1. LANOXIN [Concomitant]
     Active Substance: DIGOXIN
  2. PRILOSEC [Concomitant]
     Active Substance: OMEPRAZOLE MAGNESIUM
  3. LETAIRIS [Suspect]
     Active Substance: AMBRISENTAN
     Indication: PULMONARY ARTERIAL HYPERTENSION
     Route: 048
     Dates: start: 20090522
  4. ASPIRIN. [Concomitant]
     Active Substance: ASPIRIN
  5. SYNTHROID [Concomitant]
     Active Substance: LEVOTHYROXINE SODIUM
  6. IMODIUM [Concomitant]
     Active Substance: LOPERAMIDE HYDROCHLORIDE
  7. CYMBALTA [Concomitant]
     Active Substance: DULOXETINE HYDROCHLORIDE
  8. XANAX [Concomitant]
     Active Substance: ALPRAZOLAM
  9. VITAMIN D [Concomitant]
     Active Substance: CHOLECALCIFEROL
  10. NEURONTIN [Concomitant]
     Active Substance: GABAPENTIN
  11. LUTEIN [Concomitant]
     Active Substance: LUTEIN
  12. LASIX [Concomitant]
     Active Substance: FUROSEMIDE
  13. DETROL LA [Concomitant]
     Active Substance: TOLTERODINE TARTRATE
  14. CALCIUM CARBONATE. [Concomitant]
     Active Substance: CALCIUM CARBONATE
  15. PRINIVIL [Concomitant]
     Active Substance: LISINOPRIL
  16. ARTIFICIAL TEARS [Concomitant]
     Active Substance: GLYCERIN\HYPROMELLOSES\POLYETHYLENE GLYCOL 400
  17. GLUCOSAMINE [Concomitant]
     Active Substance: GLUCOSAMINE
  18. ULTRAM [Concomitant]
     Active Substance: TRAMADOL HYDROCHLORIDE
  19. PERCOCET [Concomitant]
     Active Substance: ACETAMINOPHEN\OXYCODONE HYDROCHLORIDE

REACTIONS (1)
  - Hepatic enzyme abnormal [Unknown]
